FAERS Safety Report 6243402-3 (Version None)
Quarter: 2009Q2

REPORT INFORMATION
  Report Type: 
  Country: None (occurrence: None)
  Receive Date: 20090622
  Receipt Date: 20090605
  Transmission Date: 20091009
  Serious: Yes (Death, Congenital Anomaly)
  Sender: FDA-Public Use
  Company Number: 8047685

PATIENT

DRUGS (1)
  1. XYZAL [Suspect]
     Dosage: TRP
     Route: 064

REACTIONS (6)
  - ABORTION SPONTANEOUS [None]
  - CONGENITAL ORAL MALFORMATION [None]
  - FOETAL MALFORMATION [None]
  - LOW SET EARS [None]
  - MATERNAL DRUGS AFFECTING FOETUS [None]
  - TALIPES [None]
